FAERS Safety Report 19927816 (Version 1)
Quarter: 2021Q4

REPORT INFORMATION
  Report Type: Spontaneous
  Country: US (occurrence: US)
  Receive Date: 20211007
  Receipt Date: 20211007
  Transmission Date: 20220303
  Serious: No
  Sender: FDA-Public Use
  Company Number: US- INDIVIOR LIMITED-INDV-130620-2021

PATIENT
  Sex: Female

DRUGS (1)
  1. SUBLOCADE [Suspect]
     Active Substance: BUPRENORPHINE
     Indication: Drug dependence
     Dosage: 300 MILLIGRAM, QMO(2 DOSES)
     Route: 065
     Dates: start: 20210628

REACTIONS (2)
  - Euphoric mood [Unknown]
  - Drug abuse [Unknown]

NARRATIVE: CASE EVENT DATE: 20210601
